FAERS Safety Report 7646334-9 (Version None)
Quarter: 2011Q3

REPORT INFORMATION
  Report Type: 
  Country: None (occurrence: None)
  Receive Date: 20110725
  Receipt Date: 20110719
  Transmission Date: 20111222
  Serious: Yes (Life-Threatening, Hospitalization)
  Sender: FDA-Public Use
  Company Number: 2011SP030684

PATIENT
  Age: 60 Year
  Sex: Female
  Weight: 46.3 kg

DRUGS (8)
  1. PEG-INTRON [Suspect]
     Indication: HEPATITIS C
     Dosage: 80 MCG'QW'SC, 100 MCG;QW;SC
     Route: 058
     Dates: start: 20110317, end: 20110623
  2. PEG-INTRON [Suspect]
     Indication: HEPATITIS C
     Dosage: 80 MCG'QW'SC, 100 MCG;QW;SC
     Route: 058
     Dates: start: 20110211, end: 20110330
  3. LOXONIN (LOXOPROFEN SODIUM) (LOXOPROFEN SODIUM) [Suspect]
     Indication: PYREXIA
     Dosage: PRN;PO
     Route: 048
     Dates: start: 20110211, end: 20110629
  4. LOXONIN (LOXOPROFEN SODIUM) (LOXOPROFEN SODIUM) [Suspect]
     Indication: PAIN
     Dosage: PRN;PO
     Route: 048
     Dates: start: 20110211, end: 20110629
  5. OMEPRAZOLE [Suspect]
     Indication: PRODUCT USED FOR UNKNOWN INDICATION
     Dosage: 20 MG;QD;PO
     Route: 048
     Dates: start: 20110313, end: 20110629
  6. DOGMATYL (SULPIRIDE) [Suspect]
     Indication: DEPRESSIVE SYMPTOM
     Dosage: 100 MG;QD;PO
     Route: 048
     Dates: start: 20110221, end: 20110629
  7. REBETOL [Suspect]
     Indication: HEPATITIS C
     Dosage: 600 MG;QD;PO
     Route: 048
     Dates: start: 20110211, end: 20110629
  8. ZOLPIDEM TARTRATE [Suspect]
     Indication: INSOMNIA
     Dosage: 10 MG;QD;PO
     Route: 048
     Dates: start: 20110224, end: 20110629

REACTIONS (4)
  - DEPRESSIVE SYMPTOM [None]
  - PALPITATIONS [None]
  - INSOMNIA [None]
  - INTERSTITIAL LUNG DISEASE [None]
